FAERS Safety Report 24579071 (Version 1)
Quarter: 2024Q4

REPORT INFORMATION
  Report Type: Spontaneous
  Country: US (occurrence: US)
  Receive Date: 20241105
  Receipt Date: 20241105
  Transmission Date: 20250115
  Serious: No
  Sender: AUROBINDO
  Company Number: US-AUROBINDO-AUR-APL-2024-002641

PATIENT
  Age: 66 Year
  Sex: Female
  Weight: 66.5 kg

DRUGS (1)
  1. METOPROLOL TARTRATE [Suspect]
     Active Substance: METOPROLOL TARTRATE
     Indication: Product used for unknown indication
     Dosage: 50 MILLIGRAM
     Route: 065
     Dates: start: 202311

REACTIONS (9)
  - Fatigue [Unknown]
  - Alopecia [Unknown]
  - Weight increased [Unknown]
  - Insomnia [Unknown]
  - Rhinalgia [Unknown]
  - Rhinorrhoea [Unknown]
  - Swelling [Unknown]
  - Inflammation [Unknown]
  - Therapy cessation [Unknown]
